FAERS Safety Report 11418708 (Version 1)
Quarter: 2015Q3

REPORT INFORMATION
  Report Type: Spontaneous
  Country: GB (occurrence: GB)
  Receive Date: 20150826
  Receipt Date: 20150826
  Transmission Date: 20151125
  Serious: Yes (Other)
  Sender: FDA-Public Use
  Company Number: GB-ACCORD-033151

PATIENT
  Age: 83 Year
  Sex: Female

DRUGS (2)
  1. ATORVASTATIN/ATORVASTATIN CALCIUM [Concomitant]
  2. CLOPIDOGREL [Suspect]
     Active Substance: CLOPIDOGREL BISULFATE
     Indication: PRODUCT USED FOR UNKNOWN INDICATION
     Route: 048

REACTIONS (1)
  - Breast haematoma [Recovered/Resolved]
